FAERS Safety Report 5874366-X (Version None)
Quarter: 2008Q3

REPORT INFORMATION
  Report Type: 
  Country: None (occurrence: None)
  Receive Date: 20080908
  Receipt Date: 20080904
  Transmission Date: 20090109
  Serious: Yes (Disabling)
  Sender: FDA-Public Use
  Company Number: IE-MERCK-0809GBR00044

PATIENT
  Age: 62 Year
  Sex: Female

DRUGS (4)
  1. ZETIA [Suspect]
     Indication: HYPERCHOLESTEROLAEMIA
     Route: 048
     Dates: start: 20080320, end: 20080808
  2. ASPIRIN [Concomitant]
     Route: 065
  3. CALCIUM CARBONATE AND CHOLECALCIFEROL [Concomitant]
     Route: 065
  4. ALENDRONATE SODIUM AND CHOLECALCIFEROL [Concomitant]
     Route: 048

REACTIONS (2)
  - MUSCLE SPASMS [None]
  - MYALGIA [None]
